FAERS Safety Report 7552239-4 (Version None)
Quarter: 2011Q2

REPORT INFORMATION
  Report Type: 
  Country: None (occurrence: None)
  Receive Date: 20110616
  Receipt Date: 20040723
  Transmission Date: 20111010
  Serious: Yes (Hospitalization)
  Sender: FDA-Public Use
  Company Number: PHHO2004CO08112

PATIENT
  Sex: Female

DRUGS (1)
  1. DIOVAN HCT [Suspect]
     Indication: HYPERTENSION
     Dosage: 80 MG, QD
     Route: 048
     Dates: start: 20000101

REACTIONS (4)
  - CARDIAC FAILURE [None]
  - FALL [None]
  - CEREBROVASCULAR ACCIDENT [None]
  - RESPIRATORY FAILURE [None]
